FAERS Safety Report 4851790-5 (Version None)
Quarter: 2005Q4

REPORT INFORMATION
  Report Type: 
  Country: None (occurrence: None)
  Receive Date: 20051209
  Receipt Date: 20051209
  Transmission Date: 20060501
  Serious: Yes (Hospitalization)
  Sender: FDA-Public Use
  Company Number: None

PATIENT
  Sex: Male
  Weight: 76 kg

DRUGS (4)
  1. LUNESTRA 2 MG [Suspect]
     Indication: INSOMNIA
     Dosage: TWO TABS QHS PO
     Route: 048
     Dates: start: 20050908, end: 20051206
  2. MARINOL [Concomitant]
  3. CLONAZEPAM [Concomitant]
  4. BEER [Concomitant]

REACTIONS (3)
  - ANXIETY [None]
  - ATRIAL FIBRILLATION [None]
  - MULTIPLE DRUG OVERDOSE [None]
